FAERS Safety Report 4823326-6 (Version None)
Quarter: 2005Q4

REPORT INFORMATION
  Report Type: 
  Country: None (occurrence: None)
  Receive Date: 20051107
  Receipt Date: 20051027
  Transmission Date: 20060501
  Serious: Yes (Hospitalization)
  Sender: FDA-Public Use
  Company Number: 2005141887

PATIENT
  Age: 62 Year
  Sex: Male
  Weight: 67 kg

DRUGS (5)
  1. LYRICA [Suspect]
     Indication: NEURALGIA
     Dosage: ORAL
     Route: 048
     Dates: start: 20050822, end: 20050921
  2. MORPHINE [Concomitant]
  3. THYROXINE (LEVOTHYROXINE) [Concomitant]
  4. LOPERAMIDE HCL [Concomitant]
  5. TAMSULOSIN HCL [Concomitant]

REACTIONS (8)
  - DRY MOUTH [None]
  - FLATULENCE [None]
  - INCREASED APPETITE [None]
  - MEMORY IMPAIRMENT [None]
  - RASH [None]
  - SPEECH DISORDER [None]
  - THINKING ABNORMAL [None]
  - THIRST [None]
